FAERS Safety Report 15284124 (Version 1)
Quarter: 2018Q4

REPORT INFORMATION
  Report Type: Spontaneous
  Country: AU (occurrence: AU)
  Receive Date: 20180816
  Receipt Date: 20180816
  Transmission Date: 20190204
  Serious: Yes (Life-Threatening, Hospitalization, Other)
  Sender: FDA-Public Use
  Company Number: AU-009507513-0308AUS00079

PATIENT
  Age: 71 Year
  Sex: Male

DRUGS (8)
  1. IRBESARTAN. [Concomitant]
     Active Substance: IRBESARTAN
  2. FUCIDIN (FUSIDIC ACID) [Interacting]
     Active Substance: FUSIDIC ACID
     Indication: IMPAIRED HEALING
     Dosage: 250 MG, TID
     Dates: start: 2002, end: 2002
  3. FUROSEMIDE. [Concomitant]
     Active Substance: FUROSEMIDE
  4. RIFAMPIN. [Concomitant]
     Active Substance: RIFAMPIN
  5. METOPROLOL. [Concomitant]
     Active Substance: METOPROLOL
  6. SIMVASTATIN. [Suspect]
     Active Substance: SIMVASTATIN
     Indication: HYPERCHOLESTEROLAEMIA
     Dosage: 40 MG, UNK
     Route: 048
     Dates: start: 1994, end: 2002
  7. WARFARIN [Concomitant]
     Active Substance: WARFARIN
  8. ACETAMINOPHEN. [Concomitant]
     Active Substance: ACETAMINOPHEN

REACTIONS (6)
  - Rhabdomyolysis [Recovered/Resolved]
  - Drug interaction [Recovered/Resolved]
  - Hepatitis [Recovered/Resolved]
  - Labelled drug-disease interaction medication error [Unknown]
  - Renal failure [Recovered/Resolved]
  - Graft infection [Unknown]

NARRATIVE: CASE EVENT DATE: 2002
